FAERS Safety Report 7895582-1 (Version None)
Quarter: 2011Q4

REPORT INFORMATION
  Report Type: 
  Country: None (occurrence: None)
  Receive Date: 20111106
  Receipt Date: 20110829
  Transmission Date: 20120403
  Serious: No
  Sender: FDA-Public Use
  Company Number: US-AMGEN-USASP2011044038

PATIENT
  Sex: Female

DRUGS (1)
  1. ENBREL [Suspect]
     Indication: ANKYLOSING SPONDYLITIS
     Dosage: 25 MG, 2 TIMES/WK
     Dates: start: 20050825

REACTIONS (7)
  - IRON DEFICIENCY ANAEMIA [None]
  - BACK PAIN [None]
  - GAIT DISTURBANCE [None]
  - MUSCLE SPASMS [None]
  - WHITE BLOOD CELL COUNT DECREASED [None]
  - INJECTION SITE HAEMATOMA [None]
  - INJECTION SITE PAIN [None]
